FAERS Safety Report 8034113-2 (Version None)
Quarter: 2012Q1

REPORT INFORMATION
  Report Type: 
  Country: None (occurrence: None)
  Receive Date: 20120110
  Receipt Date: 20120105
  Transmission Date: 20120608
  Serious: Yes (Hospitalization)
  Sender: FDA-Public Use
  Company Number: ES-ABBOTT-12P-144-0889552-00

PATIENT
  Age: 45 Day
  Sex: Male

DRUGS (4)
  1. HUMIRA [Suspect]
     Indication: ANKYLOSING SPONDYLITIS
     Route: 058
     Dates: start: 20101001, end: 20111001
  2. RIBAVIRIN [Suspect]
     Indication: HEPATITIS C
     Route: 048
     Dates: start: 20100601, end: 20110401
  3. PEGASYS [Suspect]
     Indication: HEPATITIS C
     Route: 058
     Dates: start: 20100601, end: 20110401
  4. PREDNISONE TAB [Concomitant]
     Indication: ANKYLOSING SPONDYLITIS

REACTIONS (7)
  - PNEUMONITIS [None]
  - LYMPHOCYTIC INFILTRATION [None]
  - PYREXIA [None]
  - PULMONARY GRANULOMA [None]
  - OBLITERATIVE BRONCHIOLITIS [None]
  - INTERSTITIAL LUNG DISEASE [None]
  - LABORATORY TEST ABNORMAL [None]
